FAERS Safety Report 12604502 (Version 1)
Quarter: 2016Q3

REPORT INFORMATION
  Report Type: Spontaneous
  Country: IT (occurrence: IT)
  Receive Date: 20160728
  Receipt Date: 20160728
  Transmission Date: 20161109
  Serious: Yes (Hospitalization)
  Sender: FDA-Public Use
  Company Number: IT-CONCORDIA PHARMACEUTICALS INC.-CO-KX-IT-2016-018

PATIENT
  Age: 81 Year
  Sex: Female

DRUGS (1)
  1. KAYEXALATE [Suspect]
     Active Substance: SODIUM POLYSTYRENE SULFONATE
     Route: 048
     Dates: start: 20150801, end: 20160612

REACTIONS (5)
  - Hypokalaemia [Recovering/Resolving]
  - Cardiac failure [Recovering/Resolving]
  - Bradycardia [Recovering/Resolving]
  - Medication monitoring error [Unknown]
  - Extrasystoles [Recovering/Resolving]

NARRATIVE: CASE EVENT DATE: 20160612
